FAERS Safety Report 5085829-1 (Version None)
Quarter: 2006Q3

REPORT INFORMATION
  Report Type: 
  Country: None (occurrence: None)
  Receive Date: 20060817
  Receipt Date: 20060804
  Transmission Date: 20061208
  Serious: Yes (Death, Other)
  Sender: FDA-Public Use
  Company Number: 163-20785-06080165

PATIENT
  Age: 79 Year
  Sex: Male

DRUGS (1)
  1. THALOMID [Suspect]
     Indication: MULTIPLE MYELOMA
     Dosage: 100 MG, QD, ORAL
     Route: 048
     Dates: start: 20050101

REACTIONS (5)
  - JOINT SWELLING [None]
  - PROTEIN TOTAL ABNORMAL [None]
  - RENAL FAILURE [None]
  - SUDDEN DEATH [None]
  - SWELLING FACE [None]
